FAERS Safety Report 16929913 (Version 1)
Quarter: 2019Q4

REPORT INFORMATION
  Report Type: Spontaneous
  Country: GB (occurrence: GB)
  Receive Date: 20191017
  Receipt Date: 20191017
  Transmission Date: 20200122
  Serious: Yes (Disabling)
  Sender: FDA-Public Use
  Company Number: GB-PFIZER INC-2019444937

PATIENT
  Age: 82 Year
  Sex: Male
  Weight: 70 kg

DRUGS (19)
  1. DALTEPARIN SODIUM [Suspect]
     Active Substance: DALTEPARIN SODIUM
     Dosage: UNK (5000 UNITS / 0.2 ML)
     Dates: start: 20190920
  2. FENBID [Concomitant]
     Active Substance: IBUPROFEN
     Dosage: 3 DF, 1X/DAY
     Dates: start: 20190315
  3. EPLERENONE. [Concomitant]
     Active Substance: EPLERENONE
     Dosage: 1 DF, 1X/DAY
     Dates: start: 20181113
  4. DUORESP SPIROMAX [Concomitant]
     Active Substance: BUDESONIDE\FORMOTEROL
     Dosage: 4 DF, 1X/DAY
     Route: 055
     Dates: start: 20181113
  5. CLOBETASONE BUTYRATE [Concomitant]
     Active Substance: CLOBETASONE BUTYRATE
     Dosage: APPLY 1-2 TIMES/DAY
     Dates: start: 20190920
  6. ACETYLSALICYLIC ACID [Concomitant]
     Active Substance: ASPIRIN
     Dosage: 1 DF, 1X/DAY
     Dates: start: 20181113
  7. CETIRIZINE [Concomitant]
     Active Substance: CETIRIZINE HYDROCHLORIDE
     Dosage: 1 DF, 1X/DAY
     Dates: start: 20190920
  8. IVABRADINE [Concomitant]
     Active Substance: IVABRADINE
     Dosage: 1 DF, 1X/DAY
     Dates: start: 20181113
  9. HYDROMOL [SODIUM PIDOLATE] [Concomitant]
     Dosage: USE AS DIRECTED (MOISTURISER/SOAP SUBSTITUTE-WH...
     Dates: start: 20181113
  10. EKLIRA GENUAIR [Concomitant]
     Active Substance: ACLIDINIUM BROMIDE
     Dosage: 2 DF, 1X/DAY
     Route: 055
     Dates: start: 20181113
  11. LATANOPROST. [Concomitant]
     Active Substance: LATANOPROST
     Dosage: AT NIGHT RIGHT EYE
     Route: 050
     Dates: start: 20190501
  12. FUROSEMIDE. [Concomitant]
     Active Substance: FUROSEMIDE
     Dosage: EACH MORNING
     Dates: start: 20190226
  13. PERINDOPRIL TERT-BUTYLAMINE [Concomitant]
     Active Substance: PERINDOPRIL ERBUMINE
     Dosage: 1 DF, 1X/DAY
     Dates: start: 20181113
  14. LANSOPRAZOLE. [Concomitant]
     Active Substance: LANSOPRAZOLE
     Dosage: 1 DF, 1X/DAY
     Dates: start: 20181113
  15. COLCHICINE. [Concomitant]
     Active Substance: COLCHICINE
     Dosage: TAKE 2 AND THEN ONE 4 HOURS LATE NOT TO EXCEED 12 TABLETS
     Dates: start: 20181113
  16. PARACETAMOL [Concomitant]
     Active Substance: ACETAMINOPHEN
     Dosage: 1 TO 2 TABLETS UP TO FOUR TIMES DAILY AS REQUIRED
     Dates: start: 20181113
  17. GLYCERYL TRINITRATE [Concomitant]
     Active Substance: NITROGLYCERIN
     Dosage: UNK, AS NEEDED
     Dates: start: 20181113
  18. VENTOLIN [Concomitant]
     Active Substance: ALBUTEROL SULFATE
     Dosage: FOUR TIMES A DAY
     Route: 055
     Dates: start: 20181113
  19. ATORVASTATIN [Concomitant]
     Active Substance: ATORVASTATIN
     Dosage: 1 DF, 1X/DAY
     Dates: start: 20181113

REACTIONS (2)
  - Pruritus [Unknown]
  - Injection site rash [Recovered/Resolved]

NARRATIVE: CASE EVENT DATE: 20190920
